FAERS Safety Report 4506032-7 (Version None)
Quarter: 2004Q4

REPORT INFORMATION
  Report Type: 
  Country: None (occurrence: None)
  Receive Date: 20041025
  Receipt Date: 20040806
  Transmission Date: 20050328
  Serious: Yes (Death, Hospitalization)
  Sender: FDA-Public Use
  Company Number: US-JNJFOC-20030704763

PATIENT
  Age: 73 Year
  Sex: Female
  Weight: 63.9572 kg

DRUGS (17)
  1. REMICADE [Suspect]
     Indication: RHEUMATOID ARTHRITIS
     Dosage: 300 MQ, 1 IN 1 TOTAL, INTRAVENOUS; SEE IMAGE
     Route: 042
     Dates: start: 20020408, end: 20020408
  2. REMICADE [Suspect]
     Indication: RHEUMATOID ARTHRITIS
     Dosage: 300 MQ, 1 IN 1 TOTAL, INTRAVENOUS; SEE IMAGE
     Route: 042
     Dates: start: 20020422, end: 20020422
  3. REMICADE [Suspect]
     Indication: RHEUMATOID ARTHRITIS
     Dosage: 300 MQ, 1 IN 1 TOTAL, INTRAVENOUS; SEE IMAGE
     Route: 042
     Dates: start: 20020423, end: 20020423
  4. REMICADE [Suspect]
     Indication: RHEUMATOID ARTHRITIS
     Dosage: 300 MQ, 1 IN 1 TOTAL, INTRAVENOUS; SEE IMAGE
     Route: 042
     Dates: start: 20020912, end: 20020912
  5. REMICADE [Suspect]
     Indication: RHEUMATOID ARTHRITIS
     Dosage: 300 MQ, 1 IN 1 TOTAL, INTRAVENOUS; SEE IMAGE
     Route: 042
     Dates: start: 20021205, end: 20021205
  6. REMICADE [Suspect]
     Indication: RHEUMATOID ARTHRITIS
     Dosage: 300 MQ, 1 IN 1 TOTAL, INTRAVENOUS; SEE IMAGE
     Route: 042
     Dates: start: 20030130, end: 20030130
  7. METHOTREXATE [Concomitant]
  8. PREDNISONE [Concomitant]
  9. ENALAPRIL (ENALAPRIL) [Concomitant]
  10. VIOXX [Concomitant]
  11. FOSAMAX [Concomitant]
  12. HYDROCHLOROTHIAZIDE [Concomitant]
  13. RANITIDINE [Concomitant]
  14. PREMARIN [Concomitant]
  15. FOLIC ACID [Concomitant]
  16. CALTRATE (CALCIUM CARBONATE) [Concomitant]
  17. GLUCOSAMINE/CHONDROITIN (GLUCOSAMINE W/CHONDROITIN SULFATES) [Concomitant]

REACTIONS (2)
  - ABDOMINAL PAIN UPPER [None]
  - PNEUMOCYSTIS CARINII PNEUMONIA [None]
